FAERS Safety Report 7393572-9 (Version None)
Quarter: 2011Q1

REPORT INFORMATION
  Report Type: 
  Country: None (occurrence: None)
  Receive Date: 20110331
  Receipt Date: 20110331
  Transmission Date: 20110831
  Serious: Yes (Hospitalization, Other)
  Sender: FDA-Public Use
  Company Number: None

PATIENT
  Age: 53 Year
  Sex: Female

DRUGS (1)
  1. ARTHROTEC [Suspect]
     Indication: ARTHRITIS
     Dosage: 1 OR 2X PER DAY
     Dates: start: 20110115, end: 20110310

REACTIONS (3)
  - ANAEMIA [None]
  - VAGINAL HAEMORRHAGE [None]
  - HAEMORRHAGE [None]
